FAERS Safety Report 15235062 (Version 3)
Quarter: 2018Q3

REPORT INFORMATION
  Report Type: Spontaneous
  Country: US (occurrence: US)
  Receive Date: 20180803
  Receipt Date: 20180925
  Transmission Date: 20181010
  Serious: Yes (Life-Threatening, Hospitalization, Other)
  Sender: FDA-Public Use
  Company Number: US-LUPIN PHARMACEUTICALS INC.-2018-05407

PATIENT
  Age: 14 Year
  Sex: Female

DRUGS (3)
  1. CITALOPRAM [Suspect]
     Active Substance: CITALOPRAM HYDROBROMIDE
     Indication: PRODUCT USED FOR UNKNOWN INDICATION
     Dosage: UNK, SINGLE
     Route: 048
  2. SULFAMETHOXAZOLE AND TRIMETHOPRIM [Suspect]
     Active Substance: SULFAMETHOXAZOLE\TRIMETHOPRIM
     Indication: PRODUCT USED FOR UNKNOWN INDICATION
     Dosage: UNK, SINGLE
     Route: 048
  3. GABAPENTIN. [Suspect]
     Active Substance: GABAPENTIN
     Indication: PRODUCT USED FOR UNKNOWN INDICATION
     Dosage: 53.4 GM, SINGLE (178 TABLETS OF 300 MG)
     Route: 048

REACTIONS (7)
  - Toxicity to various agents [Recovered/Resolved]
  - Myoclonus [Recovered/Resolved]
  - Generalised tonic-clonic seizure [Recovered/Resolved]
  - Dysarthria [Recovered/Resolved]
  - Lethargy [Recovered/Resolved]
  - Respiratory failure [Recovered/Resolved]
  - Intentional overdose [Unknown]
